FAERS Safety Report 8463105-4 (Version None)
Quarter: 2012Q2

REPORT INFORMATION
  Report Type: 
  Country: None (occurrence: None)
  Receive Date: 20120625
  Receipt Date: 20120620
  Transmission Date: 20120825
  Serious: Yes (Hospitalization)
  Sender: FDA-Public Use
  Company Number: JP-BAYER-2012-056496

PATIENT
  Age: 43 Year
  Sex: Female

DRUGS (4)
  1. IPE ROXO+#12288;(SUPPLEMENT) [Concomitant]
  2. NEXAVAR [Suspect]
     Indication: RENAL CELL CARCINOMA
     Dosage: DAILY DOSE 800 MG
     Route: 048
     Dates: start: 20120327, end: 20120522
  3. NEXAVAR [Suspect]
     Dosage: DAILY DOSE 800 MG
     Route: 048
     Dates: start: 20120601, end: 20120605
  4. NEXAVAR [Suspect]
     Dosage: DAILY DOSE 400 MG
     Route: 048
     Dates: start: 20120523, end: 20120531

REACTIONS (1)
  - HEPATIC FUNCTION ABNORMAL [None]
